FAERS Safety Report 11721621 (Version 1)
Quarter: 2015Q4

REPORT INFORMATION
  Report Type: Spontaneous
  Country: US (occurrence: None)
  Receive Date: 20151110
  Receipt Date: 20151110
  Transmission Date: 20160304
  Serious: No
  Sender: FDA-Public Use
  Company Number: None

PATIENT
  Age: 55 Year
  Sex: Female
  Weight: 78.93 kg

DRUGS (6)
  1. LABETALOL [Concomitant]
     Active Substance: LABETALOL\LABETALOL HYDROCHLORIDE
  2. WOMEN^S ESSENTIAL VITAMINS [Concomitant]
  3. VITAMIN E [Concomitant]
     Active Substance: .ALPHA.-TOCOPHEROL
  4. CALCIUM [Concomitant]
     Active Substance: CALCIUM
  5. VITAMIN D [Concomitant]
     Active Substance: CHOLECALCIFEROL
  6. LISINOPRIL 20 MG LUPIN PHRM -WALMART PHARMACY- [Suspect]
     Active Substance: LISINOPRIL
     Route: 048

REACTIONS (3)
  - Chest pain [None]
  - Sinus disorder [None]
  - Cough [None]

NARRATIVE: CASE EVENT DATE: 20151008
